FAERS Safety Report 8496674-9 (Version None)
Quarter: 2012Q3

REPORT INFORMATION
  Report Type: 
  Country: None (occurrence: None)
  Receive Date: 20120709
  Receipt Date: 20120703
  Transmission Date: 20120928
  Serious: No
  Sender: FDA-Public Use
  Company Number: US-B.I. PHARMACEUTICALS,INC./RIDGEFIELD-2012-BP-14966BP

PATIENT
  Sex: Female
  Weight: 90 kg

DRUGS (7)
  1. VITAMIN B COMPLEX CAP [Concomitant]
     Indication: VITAMIN B COMPLEX DEFICIENCY
     Dates: start: 20110601
  2. CRESTOR [Concomitant]
     Indication: BLOOD CHOLESTEROL INCREASED
  3. CATAPRES-TTS-1 [Suspect]
     Indication: BLOOD PRESSURE
     Route: 061
     Dates: start: 20110801
  4. SYNTHROID [Concomitant]
     Indication: THYROID DISORDER
  5. CATAPRES-TTS-1 [Suspect]
     Dosage: 0.3 MG
     Route: 061
     Dates: start: 20120101
  6. ASPIRIN [Concomitant]
     Indication: BLOOD DISORDER
     Route: 048
  7. VITAMIN D [Concomitant]
     Indication: VITAMIN D DEFICIENCY
     Dates: start: 20110601

REACTIONS (4)
  - APPLICATION SITE ERYTHEMA [None]
  - HYPERTENSION [None]
  - APPLICATION SITE PRURITUS [None]
  - APPLICATION SITE RASH [None]
